FAERS Safety Report 13847400 (Version 3)
Quarter: 2019Q1

REPORT INFORMATION
  Report Type: Spontaneous
  Country: JP (occurrence: JP)
  Receive Date: 20170808
  Receipt Date: 20190328
  Transmission Date: 20190417
  Serious: Yes (Life-Threatening, Hospitalization, Other)
  Sender: FDA-Public Use
  Company Number: JP-MYLANLABS-2017M1048453

PATIENT
  Age: 28 Year
  Sex: Female
  Weight: 57 kg

DRUGS (20)
  1. PROPOFOL. [Suspect]
     Active Substance: PROPOFOL
     Indication: INDUCTION OF ANAESTHESIA
     Dosage: 120 MILLIGRAM
     Route: 065
  2. PHYTOMENADIONE [Suspect]
     Active Substance: PHYTONADIONE
     Indication: PRODUCT USED FOR UNKNOWN INDICATION
     Route: 065
  3. WARFARIN [Suspect]
     Active Substance: WARFARIN
     Indication: ANTICOAGULANT THERAPY
     Dosage: 3 MILLIGRAM, QD
     Route: 048
  4. PROPOFOL. [Suspect]
     Active Substance: PROPOFOL
     Indication: MAINTENANCE OF ANAESTHESIA
     Dosage: 5 MILLIGRAM/KILOGRAM
     Route: 065
  5. RINGERS SOLUTION [Suspect]
     Active Substance: CALCIUM CHLORIDE\POTASSIUM CHLORIDE\SODIUM CHLORIDE
     Indication: FLUID REPLACEMENT
     Dosage: 1250 MILLILITER
     Route: 065
  6. RINGERS SOLUTION [Suspect]
     Active Substance: CALCIUM CHLORIDE\POTASSIUM CHLORIDE\SODIUM CHLORIDE
     Dosage: 2150 MILLILITER
     Route: 065
  7. FRESH FROZEN PLASMA [Concomitant]
     Active Substance: HUMAN PLASMA
     Indication: FLUID REPLACEMENT
     Dosage: 720 MILLILITER
     Route: 065
  8. LANDIOLOL [Concomitant]
     Active Substance: LANDIOLOL
     Indication: HAEMODYNAMIC INSTABILITY
     Route: 050
  9. HEPARIN [Suspect]
     Active Substance: HEPARIN SODIUM
     Indication: THROMBOSIS PROPHYLAXIS
  10. PLATELETS [Concomitant]
     Active Substance: HUMAN PLATELET, ALLOGENIC
     Indication: FLUID REPLACEMENT
     Route: 065
  11. NOREPINEPHRINE. [Concomitant]
     Active Substance: NOREPINEPHRINE
     Indication: HAEMODYNAMIC INSTABILITY
     Route: 050
  12. HEPARIN [Suspect]
     Active Substance: HEPARIN SODIUM
     Indication: ANTICOAGULANT THERAPY
     Dosage: 500 INTERNATIONAL UNIT, QH
     Route: 050
  13. KETAMINE [Concomitant]
     Active Substance: KETAMINE
     Indication: MAINTENANCE OF ANAESTHESIA
     Dosage: 100 MILLIGRAM
     Route: 065
  14. RED BLOOD CELLS [Concomitant]
     Active Substance: HUMAN RED BLOOD CELL
     Indication: FLUID REPLACEMENT
     Route: 065
  15. ROCURONIUM [Suspect]
     Active Substance: ROCURONIUM BROMIDE
     Indication: NEUROMUSCULAR BLOCKING THERAPY
     Dosage: 0.9 MG/KG
     Route: 065
  16. FENTANYL. [Concomitant]
     Active Substance: FENTANYL
     Indication: MAINTENANCE OF ANAESTHESIA
     Dosage: 500 MICROGRAM
     Route: 065
  17. LACTATED RINGERS SOLUTION [Concomitant]
     Active Substance: CALCIUM CHLORIDE\POTASSIUM CHLORIDE\SODIUM CHLORIDE\SODIUM LACTATE
     Indication: FLUID REPLACEMENT
     Route: 065
  18. OXYTOCIN. [Concomitant]
     Active Substance: OXYTOCIN
     Indication: UTERINE ATONY
     Dosage: 10 U
     Route: 042
  19. SUGAMMADEX [Concomitant]
     Active Substance: SUGAMMADEX
     Indication: NEUROMUSCULAR BLOCKADE REVERSAL
     Dosage: 200 MILLIGRAM
     Route: 065
  20. ACETYLSALICYLIC ACID [Suspect]
     Active Substance: ASPIRIN
     Indication: ANTICOAGULANT THERAPY
     Dosage: 100 MILLIGRAM, QD
     Route: 048

REACTIONS (4)
  - Maternal exposure during pregnancy [Recovered/Resolved]
  - Anaemia [Recovered/Resolved]
  - Postpartum haemorrhage [Recovered/Resolved]
  - Maternal exposure during delivery [Recovered/Resolved]
